FAERS Safety Report 10010526 (Version 2)
Quarter: 2014Q1

REPORT INFORMATION
  Report Type: Spontaneous
  Country: US (occurrence: US)
  Receive Date: 20140314
  Receipt Date: 20140331
  Transmission Date: 20141002
  Serious: Yes (Hospitalization)
  Sender: FDA-Public Use
  Company Number: US-MERCK-1403USA006363

PATIENT
  Sex: Female

DRUGS (2)
  1. JANUVIA [Suspect]
     Indication: DIABETES MELLITUS
     Dosage: 25 MG, QD
     Route: 048
     Dates: start: 20140302, end: 20140304
  2. METFORMIN [Concomitant]
     Dosage: UNK
     Dates: end: 20140301

REACTIONS (2)
  - Lipase increased [Recovering/Resolving]
  - Amylase increased [Recovering/Resolving]
